FAERS Safety Report 11380026 (Version 1)
Quarter: 2015Q3

REPORT INFORMATION
  Report Type: Report from Study
  Country: CA (occurrence: CA)
  Receive Date: 20150814
  Receipt Date: 20150814
  Transmission Date: 20151125
  Serious: Yes (Hospitalization, Disabling, Other)
  Sender: FDA-Public Use
  Company Number: CA-AMGEN-CANSL2015080943

PATIENT
  Age: 85 Year
  Sex: Male
  Weight: 83 kg

DRUGS (1)
  1. PROLIA [Suspect]
     Active Substance: DENOSUMAB
     Indication: OSTEOPOROSIS
     Dosage: UNK
     Route: 065

REACTIONS (4)
  - Catheterisation cardiac [Recovering/Resolving]
  - Stent placement [Unknown]
  - Appendicitis [Recovered/Resolved with Sequelae]
  - Palpitations [Recovering/Resolving]

NARRATIVE: CASE EVENT DATE: 20150706
